FAERS Safety Report 23113761 (Version 1)
Quarter: 2023Q4

REPORT INFORMATION
  Report Type: Spontaneous
  Country: US (occurrence: US)
  Receive Date: 20231027
  Receipt Date: 20231027
  Transmission Date: 20240110
  Serious: No
  Sender: FDA-Public Use
  Company Number: US-OPELLA-2023OHG008951

PATIENT
  Sex: Female

DRUGS (1)
  1. ICY HOT KIDS PAIN RELIEF [Suspect]
     Active Substance: MENTHOL
     Indication: Dysmenorrhoea

REACTIONS (2)
  - Product use in unapproved indication [Unknown]
  - No adverse event [Unknown]
